FAERS Safety Report 8054782-0 (Version None)
Quarter: 2012Q1

REPORT INFORMATION
  Report Type: 
  Country: None (occurrence: None)
  Receive Date: 20120112
  Receipt Date: 20120104
  Transmission Date: 20120608
  Serious: Yes (Hospitalization)
  Sender: FDA-Public Use
  Company Number: 2012MA000258

PATIENT
  Age: 35 Year
  Sex: Male

DRUGS (2)
  1. DIAZEPAM [Suspect]
  2. CLOZARIL [Suspect]
     Indication: SCHIZOPHRENIA
     Dosage: PO
     Route: 048
     Dates: start: 20080703

REACTIONS (2)
  - OVERDOSE [None]
  - INCOHERENT [None]
